FAERS Safety Report 8456682-0 (Version None)
Quarter: 2012Q2

REPORT INFORMATION
  Report Type: 
  Country: None (occurrence: None)
  Receive Date: 20120621
  Receipt Date: 20120618
  Transmission Date: 20120825
  Serious: No
  Sender: FDA-Public Use
  Company Number: US-ASTRAZENECA-2012SE40647

PATIENT
  Sex: Male

DRUGS (5)
  1. CRESTOR [Suspect]
     Indication: BLOOD CHOLESTEROL ABNORMAL
     Route: 048
  2. PROSCAR [Concomitant]
     Indication: PROSTATOMEGALY
  3. RECLAST [Concomitant]
     Indication: OSTEOPOROSIS
  4. THYROID MEDICINE [Concomitant]
     Indication: HYPOTHYROIDISM
  5. ASPIRIN [Concomitant]

REACTIONS (1)
  - CONTUSION [None]
